FAERS Safety Report 5104767-9 (Version None)
Quarter: 2006Q3

REPORT INFORMATION
  Report Type: 
  Country: None (occurrence: None)
  Receive Date: 20060914
  Receipt Date: 20060905
  Transmission Date: 20061208
  Serious: Yes (Life-Threatening)
  Sender: FDA-Public Use
  Company Number: DE-BRISTOL-MYERS SQUIBB COMPANY-13504162

PATIENT
  Age: 51 Year
  Sex: Male

DRUGS (1)
  1. ERBITUX [Suspect]
     Indication: OROPHARYNGEAL CANCER STAGE UNSPECIFIED
     Route: 042
     Dates: start: 20060612

REACTIONS (5)
  - CONVULSION [None]
  - LOSS OF CONSCIOUSNESS [None]
  - RASH [None]
  - SHOCK [None]
  - VOMITING [None]
